FAERS Safety Report 16298653 (Version 3)
Quarter: 2019Q2

REPORT INFORMATION
  Report Type: Spontaneous
  Country: CZ (occurrence: CZ)
  Receive Date: 20190510
  Receipt Date: 20190601
  Transmission Date: 20190711
  Serious: Yes (Hospitalization, Other)
  Sender: FDA-Public Use
  Company Number: CZ-AUROBINDO-AUR-APL-2019-024856

PATIENT

DRUGS (11)
  1. PERINDOPRIL [Suspect]
     Active Substance: PERINDOPRIL
     Indication: HYPERTENSION
  2. SPIRONOLACTONE. [Suspect]
     Active Substance: SPIRONOLACTONE
     Indication: CARDIAC FAILURE
     Dosage: UNK
     Route: 065
  3. SPIRONOLACTONE. [Suspect]
     Active Substance: SPIRONOLACTONE
     Indication: HYPERTENSION
  4. TRANDOLAPRIL. [Suspect]
     Active Substance: TRANDOLAPRIL
     Indication: HYPERTENSION
     Dosage: UNK
     Route: 065
  5. FUROSEMID [Suspect]
     Active Substance: FUROSEMIDE
     Indication: CARDIAC FAILURE
     Dosage: UNK, ALSO RECEIVED FUROSEMIDE IN CONTINUOUS INJECTION
     Route: 040
  6. FUROSEMID [Suspect]
     Active Substance: FUROSEMIDE
     Indication: HYPERTENSION
  7. SILDENAFIL. [Suspect]
     Active Substance: SILDENAFIL
     Indication: PULMONARY ARTERIAL HYPERTENSION
     Dosage: UNK
     Route: 065
  8. FUROSEMID TABLETS [Suspect]
     Active Substance: FUROSEMIDE
     Indication: SWELLING
     Dosage: UNK
     Route: 048
  9. PERINDOPRIL [Suspect]
     Active Substance: PERINDOPRIL
     Indication: SWELLING
     Dosage: UNK
     Route: 048
  10. ALLOPURINOL TABLETS [Suspect]
     Active Substance: ALLOPURINOL
     Indication: SWELLING
     Dosage: UNK
     Route: 048
  11. ALLOPURINOL TABLETS [Suspect]
     Active Substance: ALLOPURINOL
     Indication: GOUTY ARTHRITIS

REACTIONS (21)
  - Hypoventilation [Unknown]
  - Oliguria [Unknown]
  - Left ventricular hypertrophy [Unknown]
  - Cough [Unknown]
  - Glomerular filtration rate decreased [Unknown]
  - Dyspnoea [Unknown]
  - Bronchitis chronic [Unknown]
  - Right ventricular failure [Unknown]
  - Hypoxia [Unknown]
  - Ejection fraction decreased [Unknown]
  - Discomfort [Unknown]
  - Penile swelling [Unknown]
  - Polycythaemia [Unknown]
  - Diastolic dysfunction [Unknown]
  - Pulmonary hypertension [Unknown]
  - Rash [Recovered/Resolved]
  - Haemodynamic instability [Unknown]
  - Acute kidney injury [Unknown]
  - Peripheral swelling [Unknown]
  - Weight increased [Recovering/Resolving]
  - Scrotal swelling [Unknown]

NARRATIVE: CASE EVENT DATE: 2017
